FAERS Safety Report 16117665 (Version 1)
Quarter: 2019Q1

REPORT INFORMATION
  Report Type: Spontaneous
  Country: TR (occurrence: TR)
  Receive Date: 20190326
  Receipt Date: 20190326
  Transmission Date: 20190418
  Serious: Yes (Hospitalization)
  Sender: FDA-Public Use
  Company Number: PHHY2019TR065509

PATIENT
  Age: 62 Year
  Sex: Male

DRUGS (1)
  1. OCTREOTIDE. [Suspect]
     Active Substance: OCTREOTIDE
     Indication: OESOPHAGEAL HAEMORRHAGE
     Dosage: 100 UG, QH
     Route: 041

REACTIONS (2)
  - Atrioventricular block complete [Unknown]
  - Bradycardia [Unknown]
